FAERS Safety Report 25987847 (Version 2)
Quarter: 2025Q4

REPORT INFORMATION
  Report Type: Spontaneous
  Country: US (occurrence: US)
  Receive Date: 20251103
  Receipt Date: 20251117
  Transmission Date: 20260117
  Serious: Yes (Life-Threatening, Hospitalization)
  Sender: TEVA
  Company Number: US-TEVA-VS-3387371

PATIENT
  Age: 30 Year
  Sex: Male

DRUGS (5)
  1. AMIODARONE [Suspect]
     Active Substance: AMIODARONE
     Indication: Atrial fibrillation
     Dosage: DILUTED IN DEXTROSE AT A CONCENTRATION OF 150 MG/100 ML (1.5 MG/ML) FOR THE LOADING  DOSE AND WAS...
     Route: 050
  2. DEXTROSE [Concomitant]
     Active Substance: DEXTROSE MONOHYDRATE
     Indication: Vehicle solution use
     Dosage: DILUTED AT A CONCENTRATION OF 150 MG/100 ML (1.5 MG/ML) FOR THE LOADING  DOSE AND WAS ADMINISTERE...
     Route: 050
  3. VANCOMYCIN [Concomitant]
     Active Substance: VANCOMYCIN
     Indication: Antibiotic therapy
     Route: 065
  4. CEFEPIME [Concomitant]
     Active Substance: CEFEPIME HYDROCHLORIDE
     Indication: Antibiotic therapy
     Route: 065
  5. CLINDAMYCIN [Concomitant]
     Active Substance: CLINDAMYCIN
     Indication: Antibiotic therapy
     Route: 065

REACTIONS (3)
  - Skin necrosis [Recovered/Resolved]
  - Administration site extravasation [Recovered/Resolved]
  - Pneumonia aspiration [Unknown]
